FAERS Safety Report 9859229 (Version 1)
Quarter: 2014Q1

REPORT INFORMATION
  Report Type: Spontaneous
  Country: FR (occurrence: FR)
  Receive Date: 20140131
  Receipt Date: 20140131
  Transmission Date: 20141002
  Serious: Yes (Hospitalization)
  Sender: FDA-Public Use
  Company Number: FR-BRISTOL-MYERS SQUIBB COMPANY-20077814

PATIENT
  Age: 79 Year
  Sex: Male

DRUGS (11)
  1. HYDREA [Suspect]
     Dosage: DRUG INTERRUPTED IN AN UNSPECIFIED DATE AND RESTARTED.
     Route: 048
     Dates: start: 20131230
  2. VALSARTAN [Suspect]
     Route: 048
     Dates: end: 20140102
  3. VALSARTAN [Suspect]
     Route: 048
     Dates: start: 20140102
  4. ALLOPURINOL [Suspect]
     Route: 048
     Dates: end: 20140102
  5. MEDIATENSYL [Suspect]
     Dosage: 1 DF:30 UNIT NOS?ONCE IN THE MORNING AND ONCE IN THE EVENING
     Dates: end: 20140102
  6. CARDENSIEL [Concomitant]
     Route: 048
     Dates: start: 20131230
  7. TAHOR [Concomitant]
  8. VALSARTAN + HCTZ [Concomitant]
     Dosage: 1 DF:80/12.5 ONCE IN THE MORNING AND ONCE IN THE EVENING
     Dates: end: 20140102
  9. INEXIUM [Concomitant]
  10. TEMESTA [Concomitant]
  11. PREVISCAN [Concomitant]

REACTIONS (1)
  - Renal failure acute [Recovered/Resolved]
